FAERS Safety Report 8967704 (Version 1)
Quarter: 2012Q4

REPORT INFORMATION
  Report Type: Spontaneous
  Country: AU (occurrence: None)
  Receive Date: 20121207
  Receipt Date: 20121207
  Transmission Date: 20130627
  Serious: Yes (Hospitalization)
  Sender: FDA-Public Use
  Company Number: DSA_61216_2012

PATIENT
  Age: 31 Year
  Sex: Male

DRUGS (3)
  1. 5-FU [Suspect]
     Indication: COLORECTAL CANCER
     Dosage: (400 mg/m2),  (2400 mg/m2 over 46 hours Intravenous (not otherwise specified)), (500 mg/m2),  (2400 mg/m2 Intravenous bolus)
(Unknown),   (Unknown),   (Unknown)
  2. LEUCOVORIN [Suspect]
     Indication: COLORECTAL CANCER
     Dosage: (50 mg  (frequency unspecified)),  (50 mg,  frequency unspecified))
(Unknown),   (Unknown)
  3. OXALIPLATIN (OXALIPLATIN) [Suspect]
     Indication: COLORECTAL CANCER
     Dosage: (85  mg/m2  frequency unspecified)),  (85 mg/m2,  (frequency unspecified))
(Unknown),   (Unknown)

REACTIONS (3)
  - Myocardial ischaemia [None]
  - Arteriospasm coronary [None]
  - Myocardial infarction [None]
